FAERS Safety Report 6860943-6 (Version None)
Quarter: 2010Q3

REPORT INFORMATION
  Report Type: 
  Country: None (occurrence: None)
  Receive Date: 20100715
  Receipt Date: 20100712
  Transmission Date: 20110219
  Serious: Yes (Life-Threatening, Hospitalization, Disabling)
  Sender: FDA-Public Use
  Company Number: 2010SP001671

PATIENT
  Sex: Female
  Weight: 74 kg

DRUGS (5)
  1. TEMODAL [Suspect]
     Indication: PRODUCT USED FOR UNKNOWN INDICATION
     Dosage: PO, 185 MG; QD; PO
     Route: 048
     Dates: start: 20090521, end: 20090617
  2. TEMODAL [Suspect]
     Indication: PRODUCT USED FOR UNKNOWN INDICATION
     Dosage: PO, 185 MG; QD; PO
     Route: 048
     Dates: start: 20080612
  3. TEMODAL [Suspect]
     Indication: PRODUCT USED FOR UNKNOWN INDICATION
     Dosage: PO, 185 MG; QD; PO
     Route: 048
     Dates: start: 20080828
  4. TEMODAL [Suspect]
  5. TEMODAL [Suspect]

REACTIONS (14)
  - ATAXIA [None]
  - BLADDER DISORDER [None]
  - BRAIN STEM ISCHAEMIA [None]
  - CEREBRAL ISCHAEMIA [None]
  - COORDINATION ABNORMAL [None]
  - ENCEPHALITIS HERPES [None]
  - HEMIPARESIS [None]
  - HYPOGLOSSAL NERVE PARALYSIS [None]
  - IIIRD NERVE PARALYSIS [None]
  - MENINGITIS HERPES [None]
  - NEUTROPHIL COUNT INCREASED [None]
  - PAIN [None]
  - SPEECH DISORDER [None]
  - VIITH NERVE PARALYSIS [None]
